FAERS Safety Report 9245363 (Version 2)
Quarter: 2013Q2

REPORT INFORMATION
  Report Type: Spontaneous
  Country: FR (occurrence: FR)
  Receive Date: 20130422
  Receipt Date: 20130424
  Transmission Date: 20140414
  Serious: Yes (Hospitalization)
  Sender: FDA-Public Use
  Company Number: FR-PFIZER INC-2013122304

PATIENT
  Age: 63 Year
  Sex: Female

DRUGS (7)
  1. INIPOMP [Suspect]
     Dosage: UNK
     Route: 048
     Dates: end: 20130323
  2. METOJECT [Suspect]
     Indication: RHEUMATOID ARTHRITIS
     Dosage: 10 MG/ML, UNK
     Route: 058
     Dates: end: 20130323
  3. DAFALGAN [Concomitant]
     Dosage: UNK
  4. LEXOMIL [Concomitant]
     Dosage: UNK
  5. SPECIAFOLDINE [Concomitant]
     Dosage: UNK
  6. SPASFON [Concomitant]
     Dosage: UNK
  7. CORTANCYL [Concomitant]
     Dosage: UNK

REACTIONS (1)
  - Neutropenia [Recovered/Resolved]
